FAERS Safety Report 16231410 (Version 3)
Quarter: 2019Q2

REPORT INFORMATION
  Report Type: Spontaneous
  Country: US (occurrence: US)
  Receive Date: 20190424
  Receipt Date: 20190627
  Transmission Date: 20190711
  Serious: No
  Sender: FDA-Public Use
  Company Number: US-CELGENEUS-USA-20190406393

PATIENT
  Sex: Female

DRUGS (3)
  1. OTEZLA [Suspect]
     Active Substance: APREMILAST
     Indication: PSORIASIS
     Route: 048
  2. OTEZLA [Suspect]
     Active Substance: APREMILAST
     Route: 048
  3. OTEZLA [Suspect]
     Active Substance: APREMILAST
     Dosage: REDUCED DOSE
     Route: 048

REACTIONS (7)
  - Psoriasis [Unknown]
  - Weight decreased [Unknown]
  - Illness anxiety disorder [Unknown]
  - Dry skin [Unknown]
  - Headache [Unknown]
  - Stress [Unknown]
  - Constipation [Unknown]
